FAERS Safety Report 11645927 (Version 1)
Quarter: 2015Q4

REPORT INFORMATION
  Report Type: Spontaneous
  Country: GB (occurrence: GB)
  Receive Date: 20151020
  Receipt Date: 20151020
  Transmission Date: 20160304
  Serious: Yes (Other)
  Sender: FDA-Public Use
  Company Number: GB-AUROBINDO-AUR-APL-2015-09319

PATIENT
  Age: 57 Year
  Sex: Male

DRUGS (13)
  1. FILGRASTIM [Concomitant]
     Active Substance: FILGRASTIM
     Indication: PRODUCT USED FOR UNKNOWN INDICATION
     Dosage: 1 DF, ONCE A DAY
     Route: 058
     Dates: start: 2015
  2. ALLOPURINOL 300 MG [Suspect]
     Active Substance: ALLOPURINOL
     Indication: HODGKIN^S DISEASE
     Dosage: 300 MG, ONCE A DAY
     Route: 048
     Dates: start: 2015
  3. ONDANSETRON 8MG [Suspect]
     Active Substance: ONDANSETRON
     Indication: HODGKIN^S DISEASE
     Dosage: 8 MG, TWO TIMES A DAY
     Route: 048
     Dates: start: 2015
  4. ACICLOVIR [Suspect]
     Active Substance: ACYCLOVIR
     Indication: HODGKIN^S DISEASE
     Dosage: 400 MG, TWO TIMES A DAY
     Route: 048
     Dates: start: 2015
  5. PREDNISOLONE. [Concomitant]
     Active Substance: PREDNISOLONE
     Indication: PRODUCT USED FOR UNKNOWN INDICATION
     Route: 065
     Dates: start: 2015
  6. COTRIMOXAZOLE [Suspect]
     Active Substance: SULFAMETHOXAZOLE\TRIMETHOPRIM
     Indication: HODGKIN^S DISEASE
     Dosage: 960 MG, ONCE A DAY
     Route: 048
     Dates: start: 2015
  7. IFOSFAMIDE. [Suspect]
     Active Substance: IFOSFAMIDE
     Indication: HODGKIN^S DISEASE
     Dosage: UNK
     Route: 041
     Dates: start: 2015
  8. VINORELBINE [Suspect]
     Active Substance: VINORELBINE\VINORELBINE TARTRATE
     Indication: HODGKIN^S DISEASE
     Dosage: UNK
     Route: 041
     Dates: start: 2015
  9. OMEPRAZOLE. [Concomitant]
     Active Substance: OMEPRAZOLE
     Indication: PRODUCT USED FOR UNKNOWN INDICATION
     Dosage: 20 G, ONCE A DAY
     Route: 048
     Dates: start: 2015
  10. PHENYTOIN. [Concomitant]
     Active Substance: PHENYTOIN
     Indication: PRODUCT USED FOR UNKNOWN INDICATION
     Dosage: UNK
     Route: 065
     Dates: start: 2015
  11. GEMCITABINE [Suspect]
     Active Substance: GEMCITABINE\GEMCITABINE HYDROCHLORIDE
     Indication: HODGKIN^S DISEASE
     Dosage: UNK
     Route: 041
     Dates: start: 2015
  12. FLUCONAZOLE. [Concomitant]
     Active Substance: FLUCONAZOLE
     Indication: PRODUCT USED FOR UNKNOWN INDICATION
     Dosage: 50 MG, ONCE A DAY
     Route: 065
     Dates: start: 2015
  13. CHLORHEXIDINE [Concomitant]
     Active Substance: CHLORHEXIDINE
     Indication: PRODUCT USED FOR UNKNOWN INDICATION
     Route: 065
     Dates: start: 2015

REACTIONS (3)
  - Blister [Not Recovered/Not Resolved]
  - Pruritus [Unknown]
  - Rash [Unknown]

NARRATIVE: CASE EVENT DATE: 20150813
